FAERS Safety Report 19192236 (Version 1)
Quarter: 2021Q2

REPORT INFORMATION
  Report Type: Spontaneous
  Country: US (occurrence: US)
  Receive Date: 20210428
  Receipt Date: 20210428
  Transmission Date: 20210717
  Serious: No
  Sender: FDA-Public Use
  Company Number: US-IGSA-BIG0013683

PATIENT
  Sex: Male

DRUGS (1)
  1. XEMBIFY [Suspect]
     Active Substance: HUMAN IMMUNOGLOBULIN G
     Indication: PRODUCT USED FOR UNKNOWN INDICATION

REACTIONS (8)
  - Burning sensation [Unknown]
  - Infusion site scab [Unknown]
  - Pain [Unknown]
  - Tremor [Unknown]
  - Flushing [Unknown]
  - Infusion site swelling [Unknown]
  - Abnormal behaviour [Unknown]
  - Crying [Unknown]
